FAERS Safety Report 8399940-0 (Version None)
Quarter: 2012Q2

REPORT INFORMATION
  Report Type: 
  Country: None (occurrence: None)
  Receive Date: 20120531
  Receipt Date: 20120522
  Transmission Date: 20120825
  Serious: Yes (Death)
  Sender: FDA-Public Use
  Company Number: US-BAXTER-2012BAX006755

PATIENT
  Age: 36 Year
  Sex: Female

DRUGS (1)
  1. TISSEEL VH [Suspect]
     Route: 065

REACTIONS (2)
  - SEPSIS [None]
  - DEATH [None]
